FAERS Safety Report 6057202-0 (Version None)
Quarter: 2009Q1

REPORT INFORMATION
  Report Type: 
  Country: None (occurrence: None)
  Receive Date: 20090129
  Receipt Date: 20080414
  Transmission Date: 20090719
  Serious: Yes (Other)
  Sender: FDA-Public Use
  Company Number: A0716484A

PATIENT
  Age: 37 Year
  Sex: Female

DRUGS (2)
  1. WELLBUTRIN [Suspect]
     Indication: DEPRESSION
     Dosage: 150MG PER DAY
     Route: 048
     Dates: start: 20070401, end: 20080201
  2. CELEXA [Suspect]
     Indication: ANXIETY
     Dates: start: 20080204

REACTIONS (2)
  - INSOMNIA [None]
  - SUICIDAL IDEATION [None]
